FAERS Safety Report 13615406 (Version 1)
Quarter: 2017Q2

REPORT INFORMATION
  Report Type: Spontaneous
  Country: DE (occurrence: DE)
  Receive Date: 20170606
  Receipt Date: 20170606
  Transmission Date: 20170830
  Serious: Yes (Other)
  Sender: FDA-Public Use
  Company Number: DE-JNJFOC-20170600484

PATIENT
  Age: 57 Year
  Sex: Male
  Weight: 77 kg

DRUGS (1)
  1. IMBRUVICA [Suspect]
     Active Substance: IBRUTINIB
     Indication: CHRONIC LYMPHOCYTIC LEUKAEMIA
     Route: 048
     Dates: start: 20170329

REACTIONS (2)
  - Vitreous detachment [Recovered/Resolved]
  - Lymphocytosis [Unknown]

NARRATIVE: CASE EVENT DATE: 20170510
